FAERS Safety Report 4879277-4 (Version None)
Quarter: 2006Q1

REPORT INFORMATION
  Report Type: 
  Country: None (occurrence: None)
  Receive Date: 20060112
  Receipt Date: 20051007
  Transmission Date: 20060701
  Serious: Yes (Hospitalization, Other)
  Sender: FDA-Public Use
  Company Number: US-MERCK-0510USA05741

PATIENT
  Age: 61 Year
  Sex: Female
  Weight: 85 kg

DRUGS (5)
  1. VIOXX [Suspect]
     Indication: ARTHRITIS
     Route: 048
  2. PAXIL [Concomitant]
     Indication: DEPRESSION
     Route: 065
  3. PAXIL [Concomitant]
     Indication: NERVOUSNESS
     Route: 065
  4. KLONOPIN [Concomitant]
     Indication: DEPRESSION
     Route: 065
  5. KLONOPIN [Concomitant]
     Indication: NERVOUSNESS
     Route: 065

REACTIONS (3)
  - ANXIETY [None]
  - CHEST PAIN [None]
  - MYOCARDIAL INFARCTION [None]
